FAERS Safety Report 11870179 (Version 1)
Quarter: 2015Q4

REPORT INFORMATION
  Report Type: Spontaneous
  Country: US (occurrence: None)
  Receive Date: 20151224
  Receipt Date: 20151224
  Transmission Date: 20160305
  Serious: Yes (Life-Threatening)
  Sender: FDA-Public Use
  Company Number: None

PATIENT
  Age: 27 Year
  Sex: Female
  Weight: 64 kg

DRUGS (3)
  1. CLINDAMYCIN 300MG [Suspect]
     Active Substance: CLINDAMYCIN PHOSPHATE
     Indication: TOOTH INFECTION
     Dosage: 1 PILL  QID ORAL
     Route: 048
  2. CLONAZEPAM. [Concomitant]
     Active Substance: CLONAZEPAM
  3. GABAPENTIN. [Concomitant]
     Active Substance: GABAPENTIN

REACTIONS (4)
  - Jaundice [None]
  - Nausea [None]
  - Abdominal pain [None]
  - Liver function test abnormal [None]

NARRATIVE: CASE EVENT DATE: 20151222
